FAERS Safety Report 7406950-6 (Version None)
Quarter: 2011Q2

REPORT INFORMATION
  Report Type: 
  Country: None (occurrence: None)
  Receive Date: 20110411
  Receipt Date: 20110406
  Transmission Date: 20111010
  Serious: Yes (Other)
  Sender: FDA-Public Use
  Company Number: US-PFIZER INC-2009258867

PATIENT
  Sex: Male

DRUGS (2)
  1. GEODON [Suspect]
     Dosage: 80 MG, 2X/DAY
     Dates: start: 20091201
  2. GEODON [Suspect]
     Dosage: 240 MG, UNK

REACTIONS (2)
  - DYSKINESIA [None]
  - TARDIVE DYSKINESIA [None]
